FAERS Safety Report 16175124 (Version 3)
Quarter: 2024Q4

REPORT INFORMATION
  Report Type: Spontaneous
  Country: JP (occurrence: JP)
  Receive Date: 20190409
  Receipt Date: 20241105
  Transmission Date: 20250115
  Serious: Yes (Other)
  Sender: BRISTOL-MYERS SQUIBB COMPANY
  Company Number: JP-BRISTOL-MYERS SQUIBB COMPANY-BMS-2018-121987

PATIENT
  Age: 69 Year
  Sex: Male
  Weight: 48 kg

DRUGS (17)
  1. OPDIVO [Suspect]
     Active Substance: NIVOLUMAB
     Indication: Head and neck cancer
     Dosage: 145.8 MG/DAY, QD
     Route: 041
     Dates: start: 20180829, end: 20180829
  2. OPDIVO [Suspect]
     Active Substance: NIVOLUMAB
     Dosage: 145.8 MG/DAY, QD
     Route: 041
     Dates: start: 20180912, end: 20180912
  3. OPDIVO [Suspect]
     Active Substance: NIVOLUMAB
     Dosage: 240 MILLIGRAM, QD
     Route: 041
     Dates: start: 20180926, end: 20180926
  4. OPDIVO [Suspect]
     Active Substance: NIVOLUMAB
     Dosage: 240 MILLIGRAM, QD
     Route: 041
     Dates: start: 20181010, end: 20181010
  5. OPDIVO [Suspect]
     Active Substance: NIVOLUMAB
     Dosage: 240 MILLIGRAM, QD
     Route: 041
     Dates: start: 20181107, end: 20181107
  6. OPDIVO [Suspect]
     Active Substance: NIVOLUMAB
     Dosage: 240 MILLIGRAM, QD
     Route: 041
     Dates: start: 20181121, end: 20181121
  7. OPDIVO [Suspect]
     Active Substance: NIVOLUMAB
     Dosage: 240 MILLIGRAM, QD
     Route: 041
     Dates: start: 20181205, end: 20181205
  8. OPDIVO [Suspect]
     Active Substance: NIVOLUMAB
     Dosage: 240 MILLIGRAM, QD
     Route: 041
     Dates: start: 20190109, end: 20190109
  9. OPDIVO [Suspect]
     Active Substance: NIVOLUMAB
     Dosage: 240 MILLIGRAM, QD
     Route: 041
     Dates: start: 20190123, end: 20190123
  10. OPDIVO [Suspect]
     Active Substance: NIVOLUMAB
     Dosage: 240 MILLIGRAM, QD
     Route: 041
     Dates: start: 20190206, end: 20190206
  11. OPDIVO [Suspect]
     Active Substance: NIVOLUMAB
     Dosage: 240 MILLIGRAM, QD
     Route: 041
     Dates: start: 20190220, end: 20190220
  12. OPDIVO [Suspect]
     Active Substance: NIVOLUMAB
     Dosage: 240 MILLIGRAM, QD
     Route: 041
     Dates: start: 20190306, end: 20190306
  13. OPDIVO [Suspect]
     Active Substance: NIVOLUMAB
     Dosage: 240 MILLIGRAM, QD
     Route: 041
     Dates: start: 20190320, end: 20190320
  14. LEVOTHYROXINE SODIUM [Concomitant]
     Active Substance: LEVOTHYROXINE SODIUM
     Indication: Hypothyroidism
     Dosage: 12.5 MICROGRAM, QD
     Route: 048
     Dates: start: 20180815
  15. LOXOPROFEN SODIUM [Concomitant]
     Active Substance: LOXOPROFEN SODIUM
     Indication: Polyarthritis
     Dosage: ORAL DRUG UNSPECIFIED FORM
     Route: 048
     Dates: start: 20171024
  16. LANSOPRAZOLE [Concomitant]
     Active Substance: LANSOPRAZOLE
     Indication: Product used for unknown indication
     Dosage: 15 MILLIGRAM, QD
     Dates: start: 20171024
  17. REBAMIPIDE [Concomitant]
     Active Substance: REBAMIPIDE
     Indication: Product used for unknown indication
     Dosage: 100 MILLIGRAM, Q8H
     Route: 048
     Dates: start: 20171024

REACTIONS (6)
  - Amylase increased [Recovered/Resolved]
  - Lipase increased [Recovered/Resolved]
  - Immune-mediated arthritis [Recovered/Resolved]
  - Pancreatic enlargement [Recovered/Resolved]
  - Pancreatitis [Unknown]
  - Generalised oedema [Unknown]

NARRATIVE: CASE EVENT DATE: 20181017
